FAERS Safety Report 8202114-7 (Version None)
Quarter: 2012Q1

REPORT INFORMATION
  Report Type: 
  Country: None (occurrence: None)
  Receive Date: 20120308
  Receipt Date: 20120223
  Transmission Date: 20120608
  Serious: Yes (Hospitalization)
  Sender: FDA-Public Use
  Company Number: KAD201202-000162

PATIENT
  Age: 47 Year
  Sex: Female
  Weight: 68.8 kg

DRUGS (8)
  1. FLUCONAZOLE [Suspect]
     Indication: CANDIDIASIS
     Dosage: 200 MG/DAY ORALLY
     Route: 048
  2. CYTARABINE [Suspect]
     Dosage: 370 MG/M2/DAY EV, FOR 7 DAYS
  3. CEFEPIME [Suspect]
     Indication: FEBRILE NEUTROPENIA
     Dosage: 2 G EVERY EIGHT HOURS AS EMPIRIC THERAPY, INTRAVENOUS
     Route: 042
  4. DIPYRONE INJ [Suspect]
     Indication: FEBRILE NEUTROPENIA
     Dosage: 500 MG ORALLY
     Route: 048
  5. ALL TRANSRETINOIC ACID (ALL TRANSRETINOIC ACID) [Suspect]
     Indication: CHEMOTHERAPY
     Dosage: 40 MG/M2/DAY ORALLY, 20 MG/M2/DAY ORALLY
     Route: 048
  6. AMPHOTERICIN B [Suspect]
     Indication: CANDIDIASIS
     Dosage: 30 MG/DAY (6 HOURS OF INFUSION), 240 MG (CUMULATIVE DOSE)
  7. MITOXANTRONE [Suspect]
     Indication: CHEMOTHERAPY
     Dosage: 20 MG/M2/DAY EV, FOR 3 DAYS
  8. MEROPENEM [Suspect]
     Dosage: 1 G EV, EVERY EIGHT HOURS

REACTIONS (21)
  - HEPATOMEGALY [None]
  - MOUTH HAEMORRHAGE [None]
  - HYPOKALAEMIA [None]
  - ASTHENIA [None]
  - RETINOIC ACID SYNDROME [None]
  - INFUSION RELATED REACTION [None]
  - ANAEMIA [None]
  - RENAL FAILURE ACUTE [None]
  - WEIGHT INCREASED [None]
  - RENAL IMPAIRMENT [None]
  - DYSPNOEA [None]
  - LEUKOPENIA [None]
  - PNEUMONIA [None]
  - RESPIRATORY FAILURE [None]
  - URETHRAL HAEMORRHAGE [None]
  - DIARRHOEA [None]
  - OLIGURIA [None]
  - THROMBOCYTOPENIA [None]
  - PULMONARY HAEMORRHAGE [None]
  - BRONCHOSPASM [None]
  - TACHYCARDIA [None]
